FAERS Safety Report 25136725 (Version 2)
Quarter: 2025Q2

REPORT INFORMATION
  Report Type: Spontaneous
  Country: IN (occurrence: IN)
  Receive Date: 20250328
  Receipt Date: 20250423
  Transmission Date: 20250717
  Serious: Yes (Hospitalization, Other)
  Sender: PFIZER
  Company Number: IN-PFIZER INC-PV202500036482

PATIENT
  Age: 49 Year
  Sex: Male

DRUGS (4)
  1. ABROCITINIB [Suspect]
     Active Substance: ABROCITINIB
     Indication: Hyper IgE syndrome
     Dosage: 100 MG, 1X/DAY (OD)
  2. ABROCITINIB [Suspect]
     Active Substance: ABROCITINIB
     Dosage: 200 MG, 1X/DAY (OD)
     Route: 048
  3. LEVOCETIRIZINE [Concomitant]
     Active Substance: LEVOCETIRIZINE
     Indication: Pruritus
     Dosage: 5 MG, 1X/DAY (OD)
  4. BILASTINE [Concomitant]
     Active Substance: BILASTINE
     Dosage: 20 MG, 1X/DAY (OD)

REACTIONS (3)
  - Pyoderma [Recovered/Resolved]
  - Off label use [Unknown]
  - Drug effective for unapproved indication [Unknown]
